FAERS Safety Report 21393016 (Version 1)
Quarter: 2022Q3

REPORT INFORMATION
  Report Type: Spontaneous
  Country: US (occurrence: US)
  Receive Date: 20220929
  Receipt Date: 20220929
  Transmission Date: 20221026
  Serious: Yes (Other)
  Sender: FDA-Public Use
  Company Number: US-INCYTE CORPORATION-2022IN009265

PATIENT

DRUGS (1)
  1. JAKAFI [Suspect]
     Active Substance: RUXOLITINIB
     Indication: Chronic graft versus host disease
     Dosage: UNK
     Route: 065

REACTIONS (4)
  - Graft versus host disease [Unknown]
  - Gait disturbance [Unknown]
  - Weight abnormal [Unknown]
  - Pain in extremity [Not Recovered/Not Resolved]
